FAERS Safety Report 21904950 (Version 2)
Quarter: 2023Q1

REPORT INFORMATION
  Report Type: Spontaneous
  Country: NL (occurrence: NL)
  Receive Date: 20230124
  Receipt Date: 20230220
  Transmission Date: 20230418
  Serious: Yes (Other)
  Sender: FDA-Public Use
  Company Number: NL-TEVA-2023-NL-2848657

PATIENT
  Age: 19 Year
  Sex: Female

DRUGS (4)
  1. METHOTREXATE [Suspect]
     Active Substance: METHOTREXATE
     Indication: Acute lymphocytic leukaemia
     Dosage: RECEIVED DURING M-PHASE UNDER THE DCOG ALL-11 PROTOCOL
     Route: 065
  2. PREDNISOLONE SODIUM SUCCINATE [Suspect]
     Active Substance: PREDNISOLONE SODIUM SUCCINATE
     Indication: Acute lymphocytic leukaemia
     Dosage: RECEIVED DURING M-PHASE UNDER THE DCOG ALL-11 PROTOCOL
     Route: 065
  3. CYTARABINE [Suspect]
     Active Substance: CYTARABINE
     Indication: Acute lymphocytic leukaemia
     Dosage: RECEIVED DURING M-PHASE UNDER THE DCOG ALL-11 PROTOCOL
     Route: 065
  4. MERCAPTOPURINE [Suspect]
     Active Substance: MERCAPTOPURINE
     Indication: Acute lymphocytic leukaemia
     Dosage: RECEIVED DURING M-PHASE UNDER THE DCOG ALL-11 PROTOCOL
     Route: 065

REACTIONS (2)
  - Haematological infection [Unknown]
  - Systemic mycosis [Unknown]
